FAERS Safety Report 10922983 (Version 2)
Quarter: 2015Q1

REPORT INFORMATION
  Report Type: Spontaneous
  Country: JP (occurrence: JP)
  Receive Date: 20150317
  Receipt Date: 20150325
  Transmission Date: 20150721
  Serious: Yes (Hospitalization, Other)
  Sender: FDA-Public Use
  Company Number: JP-PFIZER INC-2015079719

PATIENT
  Age: 5 Decade
  Sex: Male

DRUGS (3)
  1. INLYTA [Suspect]
     Active Substance: AXITINIB
     Dosage: UNK
     Dates: start: 20130315, end: 20130909
  2. THYRADIN [Concomitant]
     Active Substance: LEVOTHYROXINE
  3. INLYTA [Suspect]
     Active Substance: AXITINIB
     Indication: RENAL CELL CARCINOMA
     Dosage: 10 MG, DAILY
     Route: 048
     Dates: start: 20121005, end: 20130115

REACTIONS (4)
  - Depressive symptom [Unknown]
  - Blood thyroid stimulating hormone increased [Unknown]
  - Bile duct stenosis [Unknown]
  - Pancreatic duct stenosis [Unknown]

NARRATIVE: CASE EVENT DATE: 20121018
